FAERS Safety Report 5083927-X (Version None)
Quarter: 2006Q3

REPORT INFORMATION
  Report Type: 
  Country: None (occurrence: None)
  Receive Date: 20060727
  Receipt Date: 20060405
  Transmission Date: 20061208
  Serious: Yes (Other)
  Sender: FDA-Public Use
  Company Number: 2006048970

PATIENT
  Age: 73 Year
  Sex: Female
  Weight: 70.3075 kg

DRUGS (1)
  1. LYRICA [Suspect]
     Indication: NEURALGIA
     Dosage: 300 MG (100 MG, 3 IN 1 D)
     Dates: start: 20050101

REACTIONS (2)
  - DYSPEPSIA [None]
  - JOINT STIFFNESS [None]
